FAERS Safety Report 18548825 (Version 1)
Quarter: 2020Q4

REPORT INFORMATION
  Report Type: Other
  Country: US (occurrence: US)
  Receive Date: 20201126
  Receipt Date: 20201126
  Transmission Date: 20210114
  Serious: Yes (Other)
  Sender: FDA-Public Use
  Company Number: US-ROCHE-2500412

PATIENT
  Sex: Female
  Weight: 68.1 kg

DRUGS (7)
  1. XOLAIR [Suspect]
     Active Substance: OMALIZUMAB
  2. XOLAIR [Suspect]
     Active Substance: OMALIZUMAB
  3. KEFLEX [Suspect]
     Active Substance: CEPHALEXIN
     Indication: CYSTITIS
     Dosage: AT LEAST FOR 7 DAYS, ONGOING: NO
     Route: 048
     Dates: start: 201907
  4. XOLAIR [Suspect]
     Active Substance: OMALIZUMAB
     Indication: IDIOPATHIC URTICARIA
     Dosage: (PREFILLED SYRINGE)
     Route: 058
     Dates: start: 201808
  5. XOLAIR [Suspect]
     Active Substance: OMALIZUMAB
     Indication: URTICARIA
  6. XOLAIR [Suspect]
     Active Substance: OMALIZUMAB
  7. XOLAIR [Suspect]
     Active Substance: OMALIZUMAB

REACTIONS (6)
  - Body height decreased [Unknown]
  - Swelling [Recovered/Resolved]
  - Pyrexia [Recovered/Resolved]
  - Urticaria [Recovered/Resolved]
  - Cystitis [Recovered/Resolved]
  - Drug hypersensitivity [Recovered/Resolved]

NARRATIVE: CASE EVENT DATE: 2019
